FAERS Safety Report 22332165 (Version 1)
Quarter: 2023Q2

REPORT INFORMATION
  Report Type: Spontaneous
  Country: US (occurrence: None)
  Receive Date: 20230516
  Receipt Date: 20230516
  Transmission Date: 20230722
  Serious: Yes (Other)
  Sender: FDA-Public Use
  Company Number: None

PATIENT
  Age: 5 Year
  Sex: Female
  Weight: 14.85 kg

DRUGS (6)
  1. SULFAMETHOXAZOLE\TRIMETHOPRIM [Suspect]
     Active Substance: SULFAMETHOXAZOLE\TRIMETHOPRIM
     Indication: Illness
     Dates: start: 20230116, end: 20230306
  2. SULFAMETHOXAZOLE\TRIMETHOPRIM [Suspect]
     Active Substance: SULFAMETHOXAZOLE\TRIMETHOPRIM
     Indication: Urinary tract infection
  3. TYLENOL [Concomitant]
     Active Substance: ACETAMINOPHEN
  4. Musinex [Concomitant]
  5. Moltrin [Concomitant]
  6. gummy bear multivitamins [Concomitant]

REACTIONS (3)
  - Abdominal pain upper [None]
  - Diarrhoea [None]
  - Drug ineffective [None]

NARRATIVE: CASE EVENT DATE: 20230120
